FAERS Safety Report 10155106 (Version 2)
Quarter: 2014Q2

REPORT INFORMATION
  Report Type: Report from Study
  Country: FR (occurrence: FR)
  Receive Date: 20140506
  Receipt Date: 20140523
  Transmission Date: 20141212
  Serious: Yes (Life-Threatening)
  Sender: FDA-Public Use
  Company Number: FR-BAXTER-2014BAX021214

PATIENT
  Age: 24 Year
  Sex: Female

DRUGS (7)
  1. BREVIBLOC 10 MG/ML, SOLUTION POUR PERFUSION [Suspect]
     Indication: SEPTIC SHOCK
     Route: 041
     Dates: start: 20140419, end: 20140419
  2. BREVIBLOC 10 MG/ML, SOLUTION POUR PERFUSION [Suspect]
     Route: 041
  3. NORADRENALINE [Concomitant]
     Indication: PRODUCT USED FOR UNKNOWN INDICATION
     Route: 065
     Dates: start: 20140419
  4. ZYVOXID [Concomitant]
     Indication: PRODUCT USED FOR UNKNOWN INDICATION
     Route: 065
     Dates: start: 20140419
  5. TAZOCILLINE [Concomitant]
     Indication: PRODUCT USED FOR UNKNOWN INDICATION
     Route: 065
     Dates: start: 20140419
  6. HYPNOVEL [Concomitant]
     Indication: PRODUCT USED FOR UNKNOWN INDICATION
     Route: 065
     Dates: start: 20140419
  7. SUFENTA [Concomitant]
     Indication: PRODUCT USED FOR UNKNOWN INDICATION
     Route: 065
     Dates: start: 20140419

REACTIONS (1)
  - Cardiovascular insufficiency [Recovered/Resolved]
